FAERS Safety Report 5534641-5 (Version None)
Quarter: 2007Q4

REPORT INFORMATION
  Report Type: 
  Country: None (occurrence: None)
  Receive Date: 20071205
  Receipt Date: 20071128
  Transmission Date: 20080405
  Serious: Yes (Other)
  Sender: FDA-Public Use
  Company Number: PHBS2007JP19535

PATIENT
  Age: 5 Year
  Sex: Male

DRUGS (5)
  1. ZADITEN [Suspect]
     Indication: HENOCH-SCHONLEIN PURPURA
     Dosage: 1.2 G/DAY
     Route: 048
     Dates: start: 20071105, end: 20071117
  2. ZADITEN [Suspect]
     Dosage: 1.2 G/DAY
     Route: 048
  3. ADONA [Concomitant]
     Dosage: 0.2 G/DAY
     Route: 048
     Dates: start: 20071105
  4. TRANSAMIN [Concomitant]
     Dosage: 1.8 G/DAY
     Route: 048
     Dates: start: 20071105
  5. HICEE [Concomitant]
     Dosage: 0.5 G/DAY
     Route: 048
     Dates: start: 20071105

REACTIONS (2)
  - FEAR [None]
  - POLLAKIURIA [None]
